FAERS Safety Report 10096203 (Version 1)
Quarter: 2014Q2

REPORT INFORMATION
  Report Type: Spontaneous
  Country: US (occurrence: US)
  Receive Date: 20140422
  Receipt Date: 20140422
  Transmission Date: 20141212
  Serious: No
  Sender: FDA-Public Use
  Company Number: US-JNJFOC-20140409223

PATIENT
  Age: 68 Year
  Sex: Female
  Weight: 74.39 kg

DRUGS (5)
  1. SANDOZ FENTANYL TRANSDERMAL SYSTEM [Suspect]
     Indication: PAIN
     Route: 062
     Dates: start: 20140403
  2. CLONIDINE [Concomitant]
     Indication: BLOOD PRESSURE
     Route: 048
  3. KLONOPIN [Concomitant]
     Indication: BLOOD PRESSURE
     Route: 048
     Dates: start: 1998
  4. SYNTHROID [Concomitant]
     Indication: THYROIDECTOMY
     Route: 048
     Dates: start: 1989
  5. HORMONES [Concomitant]
     Indication: HOT FLUSH

REACTIONS (8)
  - Product adhesion issue [Unknown]
  - Application site pruritus [Unknown]
  - Poor quality drug administered [Unknown]
  - Wrong technique in drug usage process [Unknown]
  - Dermatitis contact [Unknown]
  - Pain [Not Recovered/Not Resolved]
  - Drug ineffective [Unknown]
  - Product packaging issue [Unknown]
